FAERS Safety Report 8880616 (Version 3)
Quarter: 2012Q4

REPORT INFORMATION
  Report Type: 
  Country: FI (occurrence: FI)
  Receive Date: 20121031
  Receipt Date: 20121210
  Transmission Date: 20130627
  Serious: Yes (Other)
  Sender: FDA-Public Use
  Company Number: FI-ROCHE-1148834

PATIENT
  Sex: Male

DRUGS (2)
  1. NEORECORMON [Suspect]
     Indication: ANAEMIA
     Route: 065
     Dates: start: 20120615
  2. MIRCERA [Suspect]
     Indication: ANAEMIA
     Route: 058
     Dates: start: 20101026, end: 20120830

REACTIONS (3)
  - Aplasia pure red cell [Not Recovered/Not Resolved]
  - Drug ineffective [Unknown]
  - Splenic rupture [Unknown]
